FAERS Safety Report 7540643-X (Version None)
Quarter: 2011Q2

REPORT INFORMATION
  Report Type: 
  Country: None (occurrence: None)
  Receive Date: 20110610
  Receipt Date: 20110528
  Transmission Date: 20111010
  Serious: Yes (Hospitalization, Other)
  Sender: FDA-Public Use
  Company Number: PHHY2011KR48557

PATIENT
  Age: 31 Year
  Sex: Female

DRUGS (5)
  1. HYDRALAZINE HCL [Suspect]
     Indication: HYPERTENSION
     Dosage: UNK
     Route: 042
  2. COLECALCIFEROL [Concomitant]
     Dosage: UNK
  3. LABETALOL HCL [Suspect]
     Dosage: UNK
  4. CALCIUM CARBONATE [Concomitant]
     Dosage: UNK
  5. RISEDRONATE SODIUM [Concomitant]
     Dosage: UNK

REACTIONS (18)
  - PULMONARY OEDEMA [None]
  - LEFT VENTRICULAR DYSFUNCTION [None]
  - PRE-ECLAMPSIA [None]
  - EJECTION FRACTION DECREASED [None]
  - RIB FRACTURE [None]
  - CARDIAC FAILURE CONGESTIVE [None]
  - VENTRICULAR HYPOKINESIA [None]
  - PREMATURE LABOUR [None]
  - PULMONARY ALVEOLAR HAEMORRHAGE [None]
  - OSTEOPOROSIS [None]
  - HYPERTENSION [None]
  - SPINAL COMPRESSION FRACTURE [None]
  - DRUG EXPOSURE DURING PREGNANCY [None]
  - RENAL FAILURE ACUTE [None]
  - DISSEMINATED INTRAVASCULAR COAGULATION [None]
  - ADRENAL ADENOMA [None]
  - DYSPNOEA [None]
  - ILIUM FRACTURE [None]
